FAERS Safety Report 10601834 (Version 1)
Quarter: 2014Q4

REPORT INFORMATION
  Report Type: Spontaneous
  Country: AU (occurrence: None)
  Receive Date: 20141120
  Receipt Date: 20141120
  Transmission Date: 20150529
  Serious: Yes (Other)
  Sender: FDA-Public Use
  Company Number: NSR_01681_2014

PATIENT
  Age: 64 Year
  Sex: Male

DRUGS (1)
  1. ALLOPURINOL (ALLOPURINOL) [Suspect]
     Active Substance: ALLOPURINOL
     Indication: PRODUCT USED FOR UNKNOWN INDICATION

REACTIONS (5)
  - Drug reaction with eosinophilia and systemic symptoms [None]
  - Hepatic function abnormal [None]
  - Pyrexia [None]
  - Lymphadenopathy [None]
  - Renal dysplasia [None]
